FAERS Safety Report 7479180-X (Version None)
Quarter: 2011Q2

REPORT INFORMATION
  Report Type: 
  Country: None (occurrence: None)
  Receive Date: 20110513
  Receipt Date: 20110510
  Transmission Date: 20111010
  Serious: Yes (Hospitalization)
  Sender: FDA-Public Use
  Company Number: A0767206A

PATIENT
  Age: 60 Year
  Sex: Female
  Weight: 118.2 kg

DRUGS (21)
  1. METFORMIN HCL [Concomitant]
  2. GLUCOPHAGE [Concomitant]
  3. NEURONTIN [Concomitant]
  4. ASPIRIN [Concomitant]
  5. ATENOLOL [Concomitant]
  6. MAGNESIUM [Concomitant]
  7. LENTE [Concomitant]
  8. AVANDIA [Suspect]
     Route: 048
     Dates: start: 20010101, end: 20020901
  9. PREMARIN [Concomitant]
  10. LEVOXYL [Concomitant]
  11. KLOR-CON [Concomitant]
  12. SYNTHROID [Concomitant]
  13. LASIX [Concomitant]
  14. POTASSIUM CHLORIDE [Concomitant]
  15. GEMFIBROZIL [Concomitant]
  16. AMIODARONE HCL [Concomitant]
  17. ENALAPRIL [Concomitant]
  18. DIOVAN HCT [Concomitant]
  19. LOPID [Concomitant]
  20. ZAROXOLYN [Concomitant]
  21. REGULAR INSULIN [Concomitant]

REACTIONS (1)
  - CARDIAC FAILURE CONGESTIVE [None]
